FAERS Safety Report 5038253-1 (Version None)
Quarter: 2006Q2

REPORT INFORMATION
  Report Type: 
  Country: None (occurrence: None)
  Receive Date: 20060601
  Receipt Date: 20060125
  Transmission Date: 20061013
  Serious: No
  Sender: FDA-Public Use
  Company Number: 2006PV007608

PATIENT
  Age: 62 Year
  Sex: Female
  Weight: 77.1115 kg

DRUGS (9)
  1. BYETTA [Suspect]
     Indication: DIABETES MELLITUS NON-INSULIN-DEPENDENT
     Dosage: SEE IMAGE
     Route: 058
     Dates: start: 20051219, end: 20060118
  2. BYETTA [Suspect]
     Indication: DIABETES MELLITUS NON-INSULIN-DEPENDENT
     Dosage: SEE IMAGE
     Route: 058
     Dates: start: 20060119, end: 20060130
  3. BYETTA [Suspect]
  4. LANTUS [Concomitant]
  5. COREG [Concomitant]
  6. LISINOPRIL [Concomitant]
  7. ZOLOFT [Concomitant]
  8. DIGOXIN [Concomitant]
  9. NOVOLIN 70/30 [Concomitant]

REACTIONS (11)
  - BLOOD GLUCOSE DECREASED [None]
  - DIZZINESS [None]
  - DROOLING [None]
  - DYSPNOEA [None]
  - FEELING JITTERY [None]
  - HEART RATE INCREASED [None]
  - NAUSEA [None]
  - OVERDOSE [None]
  - PERIPHERAL COLDNESS [None]
  - SALIVARY HYPERSECRETION [None]
  - TINNITUS [None]
